FAERS Safety Report 8900147 (Version 1)
Quarter: 2012Q4

REPORT INFORMATION
  Report Type: 
  Country: US (occurrence: US)
  Receive Date: 20121109
  Receipt Date: 20121109
  Transmission Date: 20130627
  Serious: Yes (Other)
  Sender: FDA-Public Use
  Company Number: GXBR2012US002264

PATIENT
  Age: 0 Year
  Sex: Male
  Weight: 5.8 kg

DRUGS (12)
  1. HYDROCHLOROTHIAZIDE [Concomitant]
     Dosage: 10 mg, QD
     Route: 048
  2. LANSOPRAZOLE [Concomitant]
     Dosage: 4 mg, BID
     Route: 048
  3. FERROUS SULFATE [Concomitant]
     Dosage: 6 mg, QD
     Route: 048
  4. MELATONIN [Concomitant]
     Dosage: 1 mg, QHS
     Route: 048
  5. LORATADINE [Concomitant]
     Dosage: 2.5 ml, UNK
  6. DIPHENHYDRAMINE [Concomitant]
     Dosage: 2 ml, QHS
  7. FLONASE [Concomitant]
     Dosage: 1 spray in nostril, QD
     Route: 045
  8. ACETAMINOPHEN [Concomitant]
     Dosage: 2 ml, BID
  9. OMNITROPE [Suspect]
     Indication: GROWTH HORMONE DEFICIENCY
     Dosage: 0.2 mg, QD
     Dates: start: 20121104, end: 20121105
  10. DIAZOXIDE [Concomitant]
     Indication: HYPOGLYCAEMIA
     Dosage: UNK DF, UNK
  11. TPN                                /07403901/ [Concomitant]
     Indication: HYPOGLYCAEMIA
     Dosage: UNK DF, CONT
  12. PULMICORT [Concomitant]
     Indication: HYPOGLYCAEMIA
     Dosage: UNK DF, UNK

REACTIONS (1)
  - Convulsion [Recovered/Resolved]
